FAERS Safety Report 6987163-9 (Version None)
Quarter: 2010Q3

REPORT INFORMATION
  Report Type: 
  Country: None (occurrence: None)
  Receive Date: 20100916
  Receipt Date: 20100907
  Transmission Date: 20110219
  Serious: Yes (Other)
  Sender: FDA-Public Use
  Company Number: US-PFIZER INC-2010108168

PATIENT
  Sex: Female

DRUGS (1)
  1. CHANTIX [Suspect]
     Dosage: UNK

REACTIONS (9)
  - ABDOMINAL PAIN UPPER [None]
  - AGITATION [None]
  - DIARRHOEA [None]
  - FRUSTRATION [None]
  - HEART RATE INCREASED [None]
  - HYPERTENSION [None]
  - IRRITABILITY [None]
  - MALAISE [None]
  - TENSION [None]
